FAERS Safety Report 11134856 (Version 1)
Quarter: 2015Q2

REPORT INFORMATION
  Report Type: Spontaneous
  Country: US (occurrence: US)
  Receive Date: 20150525
  Receipt Date: 20150525
  Transmission Date: 20150821
  Serious: Yes (Death, Other)
  Sender: FDA-Public Use
  Company Number: US-CIPLA LTD.-2015US03929

PATIENT

DRUGS (2)
  1. GEMCITABINE [Suspect]
     Active Substance: GEMCITABINE\GEMCITABINE HYDROCHLORIDE
     Indication: PANCREATIC CARCINOMA METASTATIC
     Dosage: 750 MG/M2 ON DAYS 1 AND 8 OVER 21 DAY CYCLES
     Route: 065
  2. TANESPIMYCIN [Suspect]
     Active Substance: TANESPIMYCIN
     Indication: PANCREATIC CARCINOMA METASTATIC
     Dosage: 154 MG/M2 ON DAYS 2 AND 9 OVER 21 DAY CYCLES
     Route: 065

REACTIONS (2)
  - Death [Fatal]
  - Neutropenia [Unknown]
